FAERS Safety Report 9784937 (Version 1)
Quarter: 2013Q4

REPORT INFORMATION
  Report Type: Spontaneous
  Country: AU (occurrence: AU)
  Receive Date: 20131227
  Receipt Date: 20131227
  Transmission Date: 20140711
  Serious: Yes (Other)
  Sender: FDA-Public Use
  Company Number: AU-GE HEALTHCARE MEDICAL DIAGNOSTICS-VISP-PR-1312S-0993

PATIENT
  Age: 42 Year
  Sex: Female
  Weight: 73 kg

DRUGS (3)
  1. VISIPAQUE [Suspect]
     Indication: RENAL CELL CARCINOMA
     Route: 042
     Dates: start: 20131216, end: 20131216
  2. VISIPAQUE [Suspect]
     Indication: INVESTIGATION
  3. VISIPAQUE [Suspect]
     Indication: DIAGNOSTIC PROCEDURE

REACTIONS (5)
  - Condition aggravated [Not Recovered/Not Resolved]
  - Rash erythematous [Not Recovered/Not Resolved]
  - Urticaria [Not Recovered/Not Resolved]
  - Erythema [Not Recovered/Not Resolved]
  - Pruritus [Not Recovered/Not Resolved]
